FAERS Safety Report 4483754-8 (Version None)
Quarter: 2004Q4

REPORT INFORMATION
  Report Type: 
  Country: None (occurrence: None)
  Receive Date: 20041021
  Receipt Date: 20041013
  Transmission Date: 20050328
  Serious: Yes (Other)
  Sender: FDA-Public Use
  Company Number: 2004238782US

PATIENT
  Sex: Female

DRUGS (5)
  1. PROVERA [Suspect]
     Indication: OSTEOPOROSIS
     Dates: start: 19960101, end: 20010101
  2. PREMPRO [Suspect]
     Dates: start: 19960101, end: 20010101
  3. PREMARIN [Suspect]
     Dates: start: 19960101, end: 20010101
  4. CYCRIN [Suspect]
     Dates: start: 19960101, end: 20010101
  5. PREMPHASE 14/14 [Suspect]
     Dates: start: 19960101, end: 20010101

REACTIONS (1)
  - BREAST CANCER FEMALE [None]
